FAERS Safety Report 16727524 (Version 2)
Quarter: 2019Q4

REPORT INFORMATION
  Report Type: Report from Study
  Country: US (occurrence: US)
  Receive Date: 20190822
  Receipt Date: 20191015
  Transmission Date: 20200122
  Serious: No
  Sender: FDA-Public Use
  Company Number: US-ROCHE-2375288

PATIENT
  Age: 39 Year
  Sex: Female
  Weight: 86.2 kg

DRUGS (1)
  1. ATEZOLIZUMAB. [Suspect]
     Active Substance: ATEZOLIZUMAB
     Indication: TRIPLE NEGATIVE BREAST CANCER
     Dosage: LAST DOSE ON 02/NOV/2018
     Route: 042
     Dates: start: 20180914

REACTIONS (4)
  - Uveitis [Recovered/Resolved with Sequelae]
  - Scleral disorder [Recovered/Resolved with Sequelae]
  - Hyperthyroidism [Unknown]
  - Neutrophil count decreased [Unknown]

NARRATIVE: CASE EVENT DATE: 20190203
